FAERS Safety Report 4942605-5 (Version None)
Quarter: 2006Q1

REPORT INFORMATION
  Report Type: 
  Country: None (occurrence: None)
  Receive Date: 20060310
  Receipt Date: 20060223
  Transmission Date: 20060701
  Serious: Yes (Death, Other)
  Sender: FDA-Public Use
  Company Number: USA-2006-0023731

PATIENT
  Age: 38 Year
  Sex: Male

DRUGS (1)
  1. OXYCONTIN [Suspect]
     Indication: SHOULDER PAIN
     Dosage: MG

REACTIONS (6)
  - ANOREXIA [None]
  - CONSTIPATION [None]
  - DRUG DEPENDENCE [None]
  - GENERAL PHYSICAL HEALTH DETERIORATION [None]
  - IMPAIRED HEALING [None]
  - POISONING [None]
